FAERS Safety Report 17834040 (Version 1)
Quarter: 2020Q2

REPORT INFORMATION
  Report Type: Spontaneous
  Country: CN (occurrence: CN)
  Receive Date: 20200528
  Receipt Date: 20200528
  Transmission Date: 20200714
  Serious: Yes (Other)
  Sender: FDA-Public Use
  Company Number: CN-ROCHE-2609626

PATIENT

DRUGS (1)
  1. RANIBIZUMAB. [Suspect]
     Active Substance: RANIBIZUMAB
     Indication: RETINAL DETACHMENT
     Dosage: 0.25 MG (INJECTION)
     Route: 065

REACTIONS (3)
  - Off label use [Unknown]
  - Retinal haemorrhage [Unknown]
  - Product use in unapproved indication [Unknown]
